FAERS Safety Report 13945179 (Version 1)
Quarter: 2017Q3

REPORT INFORMATION
  Report Type: Report from Study
  Country: CA (occurrence: CA)
  Receive Date: 20170907
  Receipt Date: 20170907
  Transmission Date: 20171128
  Serious: Yes (Death, Other)
  Sender: FDA-Public Use
  Company Number: CA-AMGEN-CANSL2017135217

PATIENT
  Age: 57 Year
  Sex: Female
  Weight: 74 kg

DRUGS (1)
  1. KYPROLIS [Suspect]
     Active Substance: CARFILZOMIB
     Indication: PLASMA CELL MYELOMA
     Dosage: 50 MG, (CYCLE 2, DAY 1,2,8,9)
     Route: 042
     Dates: start: 20170821

REACTIONS (1)
  - Death [Fatal]

NARRATIVE: CASE EVENT DATE: 20170904
